FAERS Safety Report 9171742 (Version 1)
Quarter: 2013Q1

REPORT INFORMATION
  Report Type: Spontaneous
  Country: US (occurrence: US)
  Receive Date: 20130319
  Receipt Date: 20130319
  Transmission Date: 20140127
  Serious: No
  Sender: FDA-Public Use
  Company Number: US-PFIZER INC-2013087579

PATIENT
  Age: 61 Year
  Sex: Male
  Weight: 78.01 kg

DRUGS (1)
  1. CAVERJECT [Suspect]
     Indication: ERECTILE DYSFUNCTION
     Dosage: 40 MG, AS NEEDED
     Dates: start: 2009

REACTIONS (1)
  - Drug ineffective [Unknown]
